FAERS Safety Report 5570835-0 (Version None)
Quarter: 2007Q4

REPORT INFORMATION
  Report Type: 
  Country: None (occurrence: None)
  Receive Date: 20071221
  Receipt Date: 20071208
  Transmission Date: 20080405
  Serious: Yes (Hospitalization)
  Sender: FDA-Public Use
  Company Number: JP-GENENTECH-252874

PATIENT
  Sex: Female

DRUGS (4)
  1. BEVACIZUMAB [Suspect]
     Indication: RECTAL CANCER
     Dosage: 5 MG/KG, QD
     Route: 042
     Dates: start: 20070911
  2. OXALIPLATIN [Suspect]
     Indication: RECTAL CANCER
     Dosage: 85 MG/M2, QD
     Route: 042
     Dates: start: 20070911
  3. FLUOROURACIL [Suspect]
     Indication: RECTAL CANCER
     Dosage: 400 MG/M2, QD
     Route: 042
     Dates: start: 20070911
  4. ISOVORIN [Suspect]
     Indication: RECTAL CANCER
     Dosage: 200 MG, QD
     Route: 042
     Dates: start: 20070911

REACTIONS (7)
  - ALANINE AMINOTRANSFERASE ABNORMAL [None]
  - ASPARTATE AMINOTRANSFERASE ABNORMAL [None]
  - BLOOD BILIRUBIN INCREASED [None]
  - HAEMATOTOXICITY [None]
  - MELAENA [None]
  - PLATELET COUNT ABNORMAL [None]
  - WHITE BLOOD CELL COUNT DECREASED [None]
